FAERS Safety Report 5537430-0 (Version None)
Quarter: 2007Q4

REPORT INFORMATION
  Report Type: 
  Country: None (occurrence: None)
  Receive Date: 20071207
  Receipt Date: 20071126
  Transmission Date: 20080405
  Serious: Yes (Other)
  Sender: FDA-Public Use
  Company Number: US-GILEAD-2007-0014448

PATIENT
  Sex: Female

DRUGS (1)
  1. VISTIDE [Suspect]
     Indication: ADENOVIRUS INFECTION

REACTIONS (2)
  - ACUTE HEPATIC FAILURE [None]
  - BLOOD CREATININE INCREASED [None]
